FAERS Safety Report 21176079 (Version 1)
Quarter: 2022Q3

REPORT INFORMATION
  Report Type: Spontaneous
  Country: US (occurrence: US)
  Receive Date: 20220805
  Receipt Date: 20220805
  Transmission Date: 20221027
  Serious: Yes (Other)
  Sender: FDA-Public Use
  Company Number: US-CELGENE-USA-20220200783

PATIENT
  Age: 77 Year
  Sex: Male
  Weight: 66.8 kg

DRUGS (1)
  1. ABECMA [Suspect]
     Active Substance: IDECABTAGENE VICLEUCEL
     Indication: Plasma cell myeloma
     Dosage: FREQUENCY TEXT: SINGLE?CAR+T CELLS
     Route: 042
     Dates: start: 20211123, end: 20211123

REACTIONS (6)
  - Cytokine release syndrome [Unknown]
  - Alanine aminotransferase abnormal [Unknown]
  - Fatigue [Unknown]
  - Diarrhoea [Unknown]
  - Aspartate aminotransferase increased [Unknown]
  - Decreased appetite [Unknown]

NARRATIVE: CASE EVENT DATE: 20211124
